FAERS Safety Report 11685116 (Version 1)
Quarter: 2015Q4

REPORT INFORMATION
  Report Type: Spontaneous
  Country: US (occurrence: US)
  Receive Date: 20151030
  Receipt Date: 20151030
  Transmission Date: 20160304
  Serious: No
  Sender: FDA-Public Use
  Company Number: US-BRISTOL-MYERS SQUIBB COMPANY-BMS-2015-073086

PATIENT
  Sex: Male

DRUGS (2)
  1. ABILIFY [Suspect]
     Active Substance: ARIPIPRAZOLE
     Indication: DEPRESSION
  2. ABILIFY [Suspect]
     Active Substance: ARIPIPRAZOLE
     Indication: BIPOLAR DISORDER
     Dosage: 10 MG, UNK (10 OR 15MG)
     Route: 065
     Dates: start: 2013, end: 20151020

REACTIONS (5)
  - Weight increased [Recovered/Resolved]
  - Muscle twitching [Recovered/Resolved]
  - Blepharospasm [Recovered/Resolved]
  - Somnolence [Recovered/Resolved]
  - Laziness [Recovered/Resolved]
